FAERS Safety Report 11191970 (Version 4)
Quarter: 2016Q1

REPORT INFORMATION
  Report Type: Spontaneous
  Country: CO (occurrence: CO)
  Receive Date: 20150616
  Receipt Date: 20160126
  Transmission Date: 20160525
  Serious: Yes (Death, Other)
  Sender: FDA-Public Use
  Company Number: CO-JNJFOC-20150605012

PATIENT
  Age: 89 Year
  Sex: Male
  Weight: 85 kg

DRUGS (3)
  1. PREDNISONE. [Concomitant]
     Active Substance: PREDNISONE
     Indication: PROSTATE CANCER
     Route: 048
     Dates: start: 20141231, end: 20150601
  2. PREDNISONE. [Concomitant]
     Active Substance: PREDNISONE
     Indication: PROSTATE CANCER
     Route: 048
  3. ZYTIGA [Suspect]
     Active Substance: ABIRATERONE ACETATE
     Indication: PROSTATE CANCER
     Route: 048
     Dates: start: 20141231, end: 20150601

REACTIONS (12)
  - Diarrhoea [Not Recovered/Not Resolved]
  - Blood alkaline phosphatase increased [Unknown]
  - Decreased appetite [Recovering/Resolving]
  - Muscle oedema [Not Recovered/Not Resolved]
  - General physical health deterioration [Fatal]
  - Balance disorder [Not Recovered/Not Resolved]
  - Prostatic specific antigen increased [Unknown]
  - Muscular weakness [Not Recovered/Not Resolved]
  - Fatigue [Not Recovered/Not Resolved]
  - Asthenia [Not Recovered/Not Resolved]
  - Fall [Unknown]
  - Mobility decreased [Unknown]

NARRATIVE: CASE EVENT DATE: 201507
